FAERS Safety Report 10655392 (Version 2)
Quarter: 2015Q2

REPORT INFORMATION
  Report Type: Spontaneous
  Country: US (occurrence: US)
  Receive Date: 20141216
  Receipt Date: 20150514
  Transmission Date: 20150821
  Serious: No
  Sender: FDA-Public Use
  Company Number: US-GLAXOSMITHKLINE-US2014035382

PATIENT
  Age: 67 Year
  Sex: Female

DRUGS (1)
  1. NICORETTE FRUIT CHILL [Suspect]
     Active Substance: NICOTINE
     Indication: SMOKING CESSATION THERAPY
     Dosage: 4 MG, UNK
     Route: 002
     Dates: start: 20141209, end: 20141209

REACTIONS (5)
  - Urticaria [Recovered/Resolved]
  - Product quality issue [Unknown]
  - Oral discomfort [Recovered/Resolved]
  - Drug administration error [Recovered/Resolved]
  - Glossodynia [Recovered/Resolved]
